FAERS Safety Report 9298183 (Version 1)
Quarter: 2013Q2

REPORT INFORMATION
  Report Type: Spontaneous
  Country: ES (occurrence: ES)
  Receive Date: 20130520
  Receipt Date: 20130520
  Transmission Date: 20140414
  Serious: Yes (Life-Threatening)
  Sender: FDA-Public Use
  Company Number: ES-US-EMD SERONO, INC.-E2B_7211810

PATIENT
  Age: 31 Year
  Sex: Female

DRUGS (2)
  1. GONAL-F [Suspect]
     Indication: IN VITRO FERTILISATION
     Route: 058
     Dates: start: 20130101, end: 20130505
  2. CETROTIDE [Concomitant]
     Indication: IN VITRO FERTILISATION
     Route: 058
     Dates: start: 20130108, end: 20130110

REACTIONS (3)
  - Deep vein thrombosis [Recovering/Resolving]
  - Pulmonary embolism [Recovering/Resolving]
  - Pulmonary infarction [Recovering/Resolving]
